FAERS Safety Report 20711955 (Version 3)
Quarter: 2022Q2

REPORT INFORMATION
  Report Type: Report from Study
  Country: BR (occurrence: BR)
  Receive Date: 20220414
  Receipt Date: 20220510
  Transmission Date: 20220720
  Serious: Yes (Life-Threatening, Other)
  Sender: FDA-Public Use
  Company Number: BR-BRISTOL-MYERS SQUIBB COMPANY-2022-019716

PATIENT
  Age: 77 Year
  Sex: Male
  Weight: 68 kg

DRUGS (16)
  1. NIVOLUMAB [Suspect]
     Active Substance: NIVOLUMAB
     Indication: Prostate cancer
     Dosage: MOST RECENT ADMINISTRATION WAS ON 11-MAR-2022
     Route: 042
     Dates: start: 20211203
  2. DOCETAXEL [Suspect]
     Active Substance: DOCETAXEL
     Indication: Prostate cancer
     Dosage: 103.2 MG-11-MAR-2022
     Route: 065
     Dates: start: 20211203
  3. DOCETAXEL [Suspect]
     Active Substance: DOCETAXEL
     Dosage: MG
     Route: 065
     Dates: start: 20220311, end: 20220311
  4. PREDNISONE [Concomitant]
     Active Substance: PREDNISONE
     Indication: Prostate cancer
     Dosage: FROM 03-DEC-2021 TO 21-DEC-2021?FROM 11-MAR-2022
     Dates: start: 20211203, end: 20211221
  5. MORPHINE [Concomitant]
     Active Substance: MORPHINE
     Indication: Product used for unknown indication
     Route: 048
     Dates: start: 20220311
  6. MORPHINE [Concomitant]
     Active Substance: MORPHINE
  7. ASPIRIN [Concomitant]
     Active Substance: ASPIRIN
     Indication: Product used for unknown indication
     Dosage: ONGOING
     Route: 048
     Dates: start: 2012
  8. ASPIRIN [Concomitant]
     Active Substance: ASPIRIN
  9. NPH INSULIN [Concomitant]
     Active Substance: INSULIN BEEF
     Indication: Product used for unknown indication
     Dosage: 1 DOSAGE FORM= 24 UNIT NOS
     Route: 058
     Dates: start: 20211223
  10. NPH INSULIN [Concomitant]
     Active Substance: INSULIN BEEF
  11. DEXAMETHASONE [Concomitant]
     Active Substance: DEXAMETHASONE
     Indication: Prophylaxis
     Route: 048
     Dates: start: 20220312
  12. DEXAMETHASONE [Concomitant]
     Active Substance: DEXAMETHASONE
     Route: 042
     Dates: start: 20220311, end: 20220311
  13. INSULIN NOS [Concomitant]
     Active Substance: INSULIN NOS
     Indication: Product used for unknown indication
     Dosage: 1 DOSAGE FORM=20 UNIT NOS
     Route: 058
     Dates: start: 2012
  14. SODIUM CHLORIDE [Concomitant]
     Active Substance: SODIUM CHLORIDE
     Indication: Product used for unknown indication
     Route: 042
     Dates: start: 20220318, end: 20220318
  15. ONDANSETRON [Concomitant]
     Active Substance: ONDANSETRON
     Indication: Product used for unknown indication
     Route: 042
     Dates: start: 20220311, end: 20220311
  16. SODIUM CHLORIDE [Concomitant]
     Active Substance: SODIUM CHLORIDE
     Indication: Product used for unknown indication
     Route: 042
     Dates: start: 20220311, end: 20220311

REACTIONS (1)
  - Neuropathy peripheral [Recovering/Resolving]

NARRATIVE: CASE EVENT DATE: 20220324
